FAERS Safety Report 26209517 (Version 1)
Quarter: 2025Q4

REPORT INFORMATION
  Report Type: Report from Study
  Country: EU (occurrence: EU)
  Receive Date: 20251229
  Receipt Date: 20251229
  Transmission Date: 20260118
  Serious: Yes (Hospitalization)
  Sender: MYLAN
  Company Number: EU-ASTRAZENECA-202511GLO027856FR

PATIENT
  Age: 43 Year
  Sex: Male
  Weight: 90 kg

DRUGS (7)
  1. OXALIPLATIN [Suspect]
     Active Substance: OXALIPLATIN
     Indication: HER2 positive gastric cancer
     Dosage: 130 MILLIGRAM/SQ. METER
     Dates: start: 20251105, end: 20251105
  2. CAPECITABINE [Suspect]
     Active Substance: CAPECITABINE
     Indication: HER2 positive gastric cancer
     Dosage: 1000 MILLIGRAM/SQ. METER, BID
     Dates: start: 20251105, end: 20251119
  3. CAPECITABINE [Suspect]
     Active Substance: CAPECITABINE
     Indication: HER2 positive gastric cancer
     Dosage: 2000 MILLIGRAM/SQ. METER, QD
     Dates: start: 20251105, end: 20251119
  4. PEMBROLIZUMAB [Suspect]
     Active Substance: PEMBROLIZUMAB
     Indication: HER2 positive gastric cancer
     Dosage: 200 MILLIGRAM
     Dates: start: 20251105, end: 20251105
  5. TRASTUZUMAB [Suspect]
     Active Substance: TRASTUZUMAB
     Indication: HER2 positive gastric cancer
     Dosage: 8 MILLIGRAM/KILOGRAM
     Dates: start: 20251105, end: 20251105
  6. ENALAPRIL MALEATE [Concomitant]
     Active Substance: ENALAPRIL MALEATE
     Indication: Hypertension
     Dosage: 20 MILLIGRAM, QD
     Route: 061
     Dates: start: 20090101
  7. PRAVASTATIN [Concomitant]
     Active Substance: PRAVASTATIN
     Indication: Hypercholesterolaemia
     Dosage: 20 MILLIGRAM, QD
     Route: 061
     Dates: start: 20250301

REACTIONS (1)
  - Hepatitis [Not Recovered/Not Resolved]

NARRATIVE: CASE EVENT DATE: 20251128
